FAERS Safety Report 4375352-1 (Version None)
Quarter: 2004Q2

REPORT INFORMATION
  Report Type: 
  Country: None (occurrence: None)
  Receive Date: 20040602
  Receipt Date: 20040518
  Transmission Date: 20050107
  Serious: Yes (Death)
  Sender: FDA-Public Use
  Company Number: THYM-10160

PATIENT

DRUGS (7)
  1. THYMOGLOBULIN [Suspect]
     Indication: STEM CELL TRANSPLANT
     Dosage: 4 MG/KG DAILY IV
     Route: 042
     Dates: start: 19900301
  2. CYCLOPHOSPHAMIDE [Concomitant]
  3. TOTAL BODY IRRADIATION [Concomitant]
  4. CYCLOSPORINE [Concomitant]
  5. CIPROFLOXACIN [Concomitant]
  6. COTRIMOXAZOLE [Concomitant]
  7. ACYCLOVIR [Concomitant]

REACTIONS (1)
  - HERPES VIRUS INFECTION [None]
